FAERS Safety Report 19662341 (Version 3)
Quarter: 2021Q3

REPORT INFORMATION
  Report Type: Spontaneous
  Country: JP (occurrence: JP)
  Receive Date: 20210805
  Receipt Date: 20210902
  Transmission Date: 20211014
  Serious: Yes (Other)
  Sender: FDA-Public Use
  Company Number: JP-REGENERON PHARMACEUTICALS, INC.-2021-74220

PATIENT

DRUGS (14)
  1. GLANATEC [Concomitant]
     Active Substance: RIPASUDIL HYDROCHLORIDE DIHYDRATE
     Indication: PRODUCT USED FOR UNKNOWN INDICATION
     Dosage: LEFT EYE
     Route: 047
  2. VEGAMOX [Concomitant]
     Active Substance: MOXIFLOXACIN HYDROCHLORIDE
     Indication: INFECTION PROPHYLAXIS
     Dosage: LEFT EYE
  3. PA IODO [Concomitant]
     Indication: EYE IRRIGATION
     Route: 047
  4. AILAMIDE [Concomitant]
     Active Substance: BRIMONIDINE TARTRATE\BRINZOLAMIDE
     Indication: OCULAR HYPERTENSION
     Dosage: LEFT EYE, 2 DROPS PER DAY
     Route: 047
     Dates: start: 20210222, end: 20210405
  5. AIBETA [Concomitant]
     Indication: PRODUCT USED FOR UNKNOWN INDICATION
     Dosage: LEFT EYE
     Route: 047
  6. POVIDONE?IODINE. [Concomitant]
     Active Substance: POVIDONE-IODINE
     Indication: INFECTION PROPHYLAXIS
  7. MYDREPHRINE P [Concomitant]
     Indication: MYDRIASIS
     Dosage: LEFT EYE, 2 DROPS/DAY
     Route: 047
     Dates: start: 20210108, end: 20210129
  8. XYLOCAINE [Concomitant]
     Active Substance: LIDOCAINE HYDROCHLORIDE
     Indication: LOCAL ANAESTHESIA
     Dosage: LEFT EYE
     Route: 047
  9. MOXIFLOXACIN HYDROCHLORIDE. [Concomitant]
     Active Substance: MOXIFLOXACIN HYDROCHLORIDE
     Indication: PRODUCT USED FOR UNKNOWN INDICATION
     Dosage: LEFT EYE, 4 DROPS PER DAY
     Route: 047
     Dates: start: 20210108, end: 20210222
  10. TAPROS                             /06186201/ [Concomitant]
     Indication: OCULAR HYPERTENSION
     Dosage: LEFT EYE, 1 DROP PER DAY
     Dates: start: 20210222, end: 20210405
  11. EYLEA [Suspect]
     Active Substance: AFLIBERCEPT
     Indication: GLAUCOMA
     Dosage: 0.05 ML, ONCE, LEFT EYE
     Route: 031
     Dates: start: 20201026, end: 20201026
  12. XALATAN [Concomitant]
     Active Substance: LATANOPROST
     Indication: PRODUCT USED FOR UNKNOWN INDICATION
     Dosage: LEFT EYE
     Route: 047
  13. BETAMETHASONE. [Concomitant]
     Active Substance: BETAMETHASONE
     Indication: PRODUCT USED FOR UNKNOWN INDICATION
     Dosage: LEFT EYE, 4 DROPS PER DAY
     Route: 047
     Dates: start: 20210108, end: 20210222
  14. BRONUCK [Concomitant]
     Active Substance: BROMFENAC SODIUM
     Indication: PRODUCT USED FOR UNKNOWN INDICATION
     Dosage: LEFT EYE, 2 DROPS PER DAY
     Route: 047
     Dates: start: 20210108, end: 20210222

REACTIONS (1)
  - Ocular hypertension [Recovered/Resolved]

NARRATIVE: CASE EVENT DATE: 20210510
